FAERS Safety Report 11167898 (Version 2)
Quarter: 2015Q2

REPORT INFORMATION
  Report Type: Spontaneous
  Country: JP (occurrence: JP)
  Receive Date: 20150605
  Receipt Date: 20150608
  Transmission Date: 20150821
  Serious: No
  Sender: FDA-Public Use
  Company Number: JP-TEVA-2015-JP-000739J

PATIENT

DRUGS (1)
  1. FUROSEMIDE INJECTION 20MG ^TAIYO^ [Suspect]
     Active Substance: FUROSEMIDE
     Indication: PRODUCT USED FOR UNKNOWN INDICATION
     Route: 065

REACTIONS (2)
  - CSF test abnormal [None]
  - No adverse event [Unknown]
